FAERS Safety Report 21562277 (Version 1)
Quarter: 2022Q4

REPORT INFORMATION
  Report Type: Spontaneous
  Country: US (occurrence: None)
  Receive Date: 20221104
  Receipt Date: 20221104
  Transmission Date: 20230112
  Serious: Yes (Hospitalization)
  Sender: FDA-Public Use
  Company Number: None

PATIENT
  Age: 59 Year
  Sex: Female
  Weight: 69.85 kg

DRUGS (7)
  1. CAPECITABINE [Suspect]
     Active Substance: CAPECITABINE
     Indication: Rectal cancer
     Dosage: FREQUENCY : TWICE A DAY;?
     Route: 048
  2. HYDROCODONE-ACETAMINOPHEN [Concomitant]
  3. LIDOCAINE [Concomitant]
  4. NICOTINE PATCH [Concomitant]
  5. ONDANSETRON [Concomitant]
  6. POTASSSIUM CHLORIDE [Concomitant]
  7. PROCHLORPERAZINE [Concomitant]

REACTIONS (1)
  - Hospitalisation [None]
